FAERS Safety Report 6695102-3 (Version None)
Quarter: 2010Q2

REPORT INFORMATION
  Report Type: 
  Country: None (occurrence: None)
  Receive Date: 20100423
  Receipt Date: 20100416
  Transmission Date: 20101027
  Serious: Yes (Other)
  Sender: FDA-Public Use
  Company Number: PHHY2010FR24344

PATIENT
  Age: 40 Year
  Sex: Female

DRUGS (1)
  1. EXTAVIA [Suspect]
     Indication: MULTIPLE SCLEROSIS
     Dosage: UNK
     Route: 058
     Dates: start: 20100224

REACTIONS (7)
  - BALANCE DISORDER [None]
  - EPISTAXIS [None]
  - FATIGUE [None]
  - GAIT DISTURBANCE [None]
  - HAEMORRHOIDS [None]
  - HEADACHE [None]
  - SPEECH DISORDER [None]
